FAERS Safety Report 22012753 (Version 9)
Quarter: 2023Q4

REPORT INFORMATION
  Report Type: Spontaneous
  Country: FR (occurrence: FR)
  Receive Date: 20230220
  Receipt Date: 20231017
  Transmission Date: 20240109
  Serious: Yes (Death, Hospitalization, Other)
  Sender: FDA-Public Use
  Company Number: FR-JNJFOC-20230236042

PATIENT
  Age: 69 Year
  Sex: Male
  Weight: 82 kg

DRUGS (6)
  1. TECLISTAMAB [Suspect]
     Active Substance: TECLISTAMAB
     Indication: Plasma cell myeloma
     Dosage: STEP-UP DOSE, 1ST INJECTION
     Route: 065
     Dates: start: 20230118
  2. TECLISTAMAB [Suspect]
     Active Substance: TECLISTAMAB
     Dosage: 2ND INJECTION
     Route: 065
     Dates: start: 20230121
  3. TECLISTAMAB [Suspect]
     Active Substance: TECLISTAMAB
     Dosage: 3RD INJECTION ON DAY 8
     Route: 065
     Dates: start: 20230125
  4. TECLISTAMAB [Suspect]
     Active Substance: TECLISTAMAB
     Route: 065
     Dates: end: 20230209
  5. VALACYCLOVIR HYDROCHLORIDE [Concomitant]
     Active Substance: VALACYCLOVIR HYDROCHLORIDE
  6. BACTRIM [Concomitant]
     Active Substance: SULFAMETHOXAZOLE\TRIMETHOPRIM

REACTIONS (4)
  - Infection [Fatal]
  - Plasma cell myeloma [Fatal]
  - Immune effector cell-associated neurotoxicity syndrome [Recovered/Resolved]
  - Off label use [Unknown]
